FAERS Safety Report 8184007-7 (Version None)
Quarter: 2012Q1

REPORT INFORMATION
  Report Type: 
  Country: None (occurrence: None)
  Receive Date: 20120305
  Receipt Date: 20120227
  Transmission Date: 20120608
  Serious: Yes (Congenital Anomaly, Other)
  Sender: FDA-Public Use
  Company Number: US-TEVA-325022USA

PATIENT
  Sex: Female

DRUGS (4)
  1. PHENOBARBITAL TAB [Suspect]
     Dosage: 210MG AT 6 WEEKS
     Route: 065
  2. LAMOTRIGINE [Suspect]
     Dosage: 250MG AT LAST MENSTRUAL PERIOD
     Route: 065
  3. LAMOTRIGINE [Suspect]
     Dosage: 400MG AT 6 WEEKS
     Route: 065
  4. PHENOBARBITAL TAB [Suspect]
     Dosage: 120MG AT LAST MENSTRUAL PERIOD
     Route: 065

REACTIONS (3)
  - STILLBIRTH [None]
  - CLEFT LIP [None]
  - CLEFT PALATE [None]
